FAERS Safety Report 9371459 (Version 3)
Quarter: 2013Q3

REPORT INFORMATION
  Report Type: Report from Study
  Country: FR (occurrence: FR)
  Receive Date: 20130627
  Receipt Date: 20130904
  Transmission Date: 20140515
  Serious: Yes (Hospitalization)
  Sender: FDA-Public Use
  Company Number: FR-JNJFOC-20130613618

PATIENT
  Age: 16 Year
  Sex: Male
  Weight: 64.2 kg

DRUGS (1)
  1. REMICADE [Suspect]
     Indication: CROHN^S DISEASE
     Route: 042
     Dates: start: 20100816, end: 20121105

REACTIONS (1)
  - Subcutaneous abscess [Recovered/Resolved]
